FAERS Safety Report 24206306 (Version 3)
Quarter: 2024Q3

REPORT INFORMATION
  Report Type: Spontaneous
  Country: US (occurrence: US)
  Receive Date: 20240813
  Receipt Date: 20240903
  Transmission Date: 20241017
  Serious: Yes (Other)
  Sender: PFIZER
  Company Number: US-PFIZER INC-PV202400083184

PATIENT
  Age: 64 Year
  Sex: Female
  Weight: 55.782 kg

DRUGS (1)
  1. ESTRING [Suspect]
     Active Substance: ESTRADIOL
     Indication: Dyspareunia
     Dosage: 2 MG, EVERY 3 MONTHS
     Route: 067
     Dates: start: 20231111, end: 20240123

REACTIONS (4)
  - Suspected product contamination [Recovered/Resolved]
  - Vulvovaginitis trichomonal [Recovered/Resolved]
  - Pruritus [Recovered/Resolved]
  - Discharge [Recovered/Resolved]

NARRATIVE: CASE EVENT DATE: 20240115
